FAERS Safety Report 11716186 (Version 2)
Quarter: 2015Q4

REPORT INFORMATION
  Report Type: Spontaneous
  Country: US (occurrence: US)
  Receive Date: 20151104
  Receipt Date: 20151110
  Transmission Date: 20160304
  Serious: No
  Sender: FDA-Public Use
  Company Number: US-ELI_LILLY_AND_COMPANY-US201105001184

PATIENT
  Age: 57 Year
  Sex: Female

DRUGS (12)
  1. FORTEO [Suspect]
     Active Substance: TERIPARATIDE
     Dosage: 20 UG, QD
  2. FORTEO [Suspect]
     Active Substance: TERIPARATIDE
     Dosage: 20 UG, QD
  3. FORTEO [Suspect]
     Active Substance: TERIPARATIDE
     Dosage: 20 UG, QD
     Route: 065
  4. LYRICA [Concomitant]
     Active Substance: PREGABALIN
  5. FORTEO [Suspect]
     Active Substance: TERIPARATIDE
     Dosage: 20 UG, QD
  6. VITAMIN D [Concomitant]
     Active Substance: CHOLECALCIFEROL
  7. SYNTHROID [Concomitant]
     Active Substance: LEVOTHYROXINE SODIUM
     Indication: HYPOTHYROIDISM
     Dosage: UNK
  8. FORTEO [Suspect]
     Active Substance: TERIPARATIDE
     Dosage: 20 UG, QD
     Route: 065
  9. FORTEO [Suspect]
     Active Substance: TERIPARATIDE
     Indication: OSTEOPOROSIS
     Dosage: 20 UG, QD
     Dates: start: 20110303
  10. FORTEO [Suspect]
     Active Substance: TERIPARATIDE
     Dosage: 20 UG, QD
  11. FORTEO [Suspect]
     Active Substance: TERIPARATIDE
     Dosage: 20 UG, QD
  12. SINEMET [Concomitant]
     Active Substance: CARBIDOPA\LEVODOPA
     Indication: PARKINSON^S DISEASE
     Dosage: UNK UNK, EVERY 3 HRS

REACTIONS (33)
  - Blood magnesium decreased [Unknown]
  - Muscular weakness [Unknown]
  - Arthritis [Unknown]
  - Weight decreased [Unknown]
  - Hypoaesthesia [Unknown]
  - Drug dose omission [Unknown]
  - Mobility decreased [Not Recovered/Not Resolved]
  - Injury [Unknown]
  - Muscle spasms [Recovered/Resolved]
  - Blood thyroid stimulating hormone increased [Unknown]
  - Carpal tunnel syndrome [Unknown]
  - Dyskinesia [Unknown]
  - Enamel anomaly [Unknown]
  - Toothache [Unknown]
  - Tooth disorder [Unknown]
  - Parkinson^s disease [Not Recovered/Not Resolved]
  - Blood parathyroid hormone decreased [Not Recovered/Not Resolved]
  - Vein disorder [Unknown]
  - Dry mouth [Unknown]
  - Tooth resorption [Not Recovered/Not Resolved]
  - Autoimmune disorder [Not Recovered/Not Resolved]
  - Dental caries [Unknown]
  - Back pain [Not Recovered/Not Resolved]
  - Vascular pain [Unknown]
  - Injection site reaction [Unknown]
  - Peripheral swelling [Unknown]
  - Trigger finger [Unknown]
  - Visual impairment [Unknown]
  - Thyroid function test abnormal [Unknown]
  - Blood calcium decreased [Unknown]
  - Bone pain [Not Recovered/Not Resolved]
  - Pain in extremity [Unknown]
  - Fracture [Unknown]

NARRATIVE: CASE EVENT DATE: 2011
